FAERS Safety Report 10352161 (Version 1)
Quarter: 2014Q3

REPORT INFORMATION
  Report Type: Spontaneous
  Country: US (occurrence: US)
  Receive Date: 20140730
  Receipt Date: 20140730
  Transmission Date: 20150326
  Serious: No
  Sender: FDA-Public Use
  Company Number: US-ABBVIE-14P-163-1249364-00

PATIENT
  Sex: Female
  Weight: 62.65 kg

DRUGS (2)
  1. SYNTHROID [Suspect]
     Active Substance: LEVOTHYROXINE SODIUM
     Indication: HYPOTHYROIDISM
  2. SYNTHROID [Suspect]
     Active Substance: LEVOTHYROXINE SODIUM
     Indication: HYPOTHYROIDISM

REACTIONS (7)
  - Blood thyroid stimulating hormone increased [Unknown]
  - Alcohol use [Unknown]
  - Depression [Unknown]
  - Goitre [Unknown]
  - Stress [Unknown]
  - Anxiety [Unknown]
  - Fatigue [Unknown]
